FAERS Safety Report 4594846-7 (Version None)
Quarter: 2005Q1

REPORT INFORMATION
  Report Type: 
  Country: None (occurrence: None)
  Receive Date: 20050224
  Receipt Date: 20040507
  Transmission Date: 20050727
  Serious: Yes (Hospitalization)
  Sender: FDA-Public Use
  Company Number: GXKR2004DE00748

PATIENT
  Age: 79 Year
  Sex: Male
  Weight: 63.5 kg

DRUGS (6)
  1. BISOPROLOL FUMARATE [Suspect]
     Indication: CARDIAC DISORDER
     Dosage: SEE IMAGE
     Route: 048
     Dates: start: 20020101, end: 20030707
  2. BISOPROLOL FUMARATE [Suspect]
     Indication: CARDIAC DISORDER
     Dosage: SEE IMAGE
     Route: 048
     Dates: start: 20030710
  3. DIGITOXIN TAB [Suspect]
     Indication: CARDIAC DISORDER
     Dosage: 0.07 MG, ORAL
     Route: 048
     Dates: start: 20020101, end: 20030707
  4. ASS ^ISIS^ (ACETYLSALICYLIC ACID) [Concomitant]
  5. MELPERONE (MELPERONE) [Concomitant]
  6. PREDNISOLON ^JENAPHARM^ (PREDNISOLONE) [Concomitant]

REACTIONS (10)
  - BLOOD PRESSURE SYSTOLIC INCREASED [None]
  - BRADYCARDIA [None]
  - DEHYDRATION [None]
  - DEMENTIA [None]
  - DIET REFUSAL [None]
  - DRUG INTERACTION [None]
  - ELECTROCARDIOGRAM PQ INTERVAL [None]
  - GENERAL PHYSICAL HEALTH DETERIORATION [None]
  - MEDICATION ERROR [None]
  - VENTRICULAR EXTRASYSTOLES [None]
